FAERS Safety Report 9297849 (Version 1)
Quarter: 2013Q2

REPORT INFORMATION
  Report Type: Spontaneous
  Country: US (occurrence: US)
  Receive Date: 20130520
  Receipt Date: 20130520
  Transmission Date: 20140414
  Serious: Yes (Other)
  Sender: FDA-Public Use
  Company Number: US-JNJFOC-20130505005

PATIENT
  Age: 61 Year
  Sex: Female
  Weight: 68.04 kg

DRUGS (13)
  1. XARELTO [Suspect]
     Indication: THROMBOSIS
     Route: 048
     Dates: start: 201212
  2. XARELTO [Suspect]
     Indication: THROMBOSIS
     Route: 048
     Dates: end: 201304
  3. XARELTO [Suspect]
     Indication: PULMONARY THROMBOSIS
     Route: 048
     Dates: start: 201212
  4. XARELTO [Suspect]
     Indication: PULMONARY THROMBOSIS
     Route: 048
     Dates: end: 201304
  5. LEVOTHYROXINE [Concomitant]
     Indication: THYROID DISORDER
     Route: 048
     Dates: start: 2011
  6. DIAZEPAM [Concomitant]
     Indication: SLEEP DISORDER
     Route: 048
     Dates: start: 1973
  7. PROZAC [Concomitant]
     Route: 048
     Dates: start: 2013
  8. WARFARIN [Concomitant]
     Indication: THROMBOSIS
     Route: 048
     Dates: start: 201304
  9. ATENOLOL [Concomitant]
     Route: 048
  10. HYDROCODONE [Concomitant]
     Indication: PAIN
     Dosage: AS NEEDED
     Route: 048
  11. TUMS [Concomitant]
     Indication: VITAMIN SUPPLEMENTATION
     Route: 065
  12. ALBUTEROL [Concomitant]
     Indication: ASTHMA
     Route: 065
  13. NASONEX [Concomitant]
     Indication: ASTHMA
     Route: 065

REACTIONS (14)
  - Hallucination [Unknown]
  - Fall [Not Recovered/Not Resolved]
  - Upper limb fracture [Unknown]
  - Head injury [Recovered/Resolved]
  - Road traffic accident [Not Recovered/Not Resolved]
  - Disorientation [Recovered/Resolved]
  - Dysgraphia [Recovered/Resolved]
  - Nightmare [Unknown]
  - Dysarthria [Recovered/Resolved]
  - Abnormal behaviour [Recovered/Resolved]
  - Gait disturbance [Recovered/Resolved]
  - Dizziness [Recovered/Resolved]
  - Feeling abnormal [Recovered/Resolved]
  - Personality change [Recovered/Resolved]
